FAERS Safety Report 15413738 (Version 2)
Quarter: 2020Q1

REPORT INFORMATION
  Report Type: Report from Study
  Country: BR (occurrence: BR)
  Receive Date: 20180921
  Receipt Date: 20200323
  Transmission Date: 20200409
  Serious: Yes (Other)
  Sender: FDA-Public Use
  Company Number: PHHY2018BR098336

PATIENT
  Age: 46 Year
  Sex: Male
  Weight: 90 kg

DRUGS (3)
  1. COSENTYX [Suspect]
     Active Substance: SECUKINUMAB
     Indication: PSORIATIC ARTHROPATHY
     Dosage: 300 MG, QW
     Route: 058
     Dates: start: 20180831
  2. METHOTREXATE. [Concomitant]
     Active Substance: METHOTREXATE
     Indication: PRODUCT USED FOR UNKNOWN INDICATION
     Dosage: UNK
     Route: 065
  3. COSENTYX [Suspect]
     Active Substance: SECUKINUMAB
     Indication: PSORIASIS
     Dosage: UNK
     Route: 065
     Dates: start: 20180907

REACTIONS (15)
  - Skin exfoliation [Recovering/Resolving]
  - Expired product administered [Unknown]
  - Asphyxia [Recovered/Resolved with Sequelae]
  - Dyspnoea [Recovered/Resolved with Sequelae]
  - Dizziness [Recovered/Resolved with Sequelae]
  - Inflammation [Unknown]
  - Erythema [Recovering/Resolving]
  - Ear disorder [Recovered/Resolved]
  - Psoriasis [Recovering/Resolving]
  - Scab [Unknown]
  - Ear infection [Recovered/Resolved]
  - Rash macular [Recovering/Resolving]
  - Deafness [Recovered/Resolved]
  - Pain [Recovered/Resolved with Sequelae]
  - Pruritus [Unknown]

NARRATIVE: CASE EVENT DATE: 20180901
